FAERS Safety Report 22607273 (Version 7)
Quarter: 2024Q2

REPORT INFORMATION
  Report Type: Report from Study
  Country: US (occurrence: US)
  Receive Date: 20230615
  Receipt Date: 20240514
  Transmission Date: 20240716
  Serious: No
  Sender: FDA-Public Use
  Company Number: US-ACADIA PHARMACEUTICALS INC.-ACA-2023-TRF-002018

PATIENT
  Sex: Female

DRUGS (10)
  1. DAYBUE [Suspect]
     Active Substance: TROFINETIDE
     Indication: Rett syndrome
     Dosage: 40 MILLILITER, BID
     Route: 048
     Dates: start: 20230503
  2. LAMICTAL [Concomitant]
     Active Substance: LAMOTRIGINE
  3. CLOBAZAM [Concomitant]
     Active Substance: CLOBAZAM
  4. DIAZEPAM [Concomitant]
     Active Substance: DIAZEPAM
  5. MELATONIN [Concomitant]
     Active Substance: MELATONIN
  6. VITAMIN D NOS [Concomitant]
     Active Substance: VITAMIN D NOS
  7. MIRALAX [Concomitant]
     Active Substance: POLYETHYLENE GLYCOL 3350
  8. VITAMINS NOS [Concomitant]
     Active Substance: VITAMINS
  9. SOMATROPIN [Concomitant]
     Active Substance: SOMATROPIN
  10. ONFI [Concomitant]
     Active Substance: CLOBAZAM

REACTIONS (7)
  - Weight increased [Not Recovered/Not Resolved]
  - Diarrhoea [Not Recovered/Not Resolved]
  - Diarrhoea [Not Recovered/Not Resolved]
  - Diarrhoea [Not Recovered/Not Resolved]
  - Diarrhoea [Recovering/Resolving]
  - Diarrhoea [Not Recovered/Not Resolved]
  - Diarrhoea [Recovering/Resolving]
